FAERS Safety Report 9027214 (Version 1)
Quarter: 2013Q1

REPORT INFORMATION
  Report Type: Spontaneous
  Country: US (occurrence: US)
  Receive Date: 20130123
  Receipt Date: 20130123
  Transmission Date: 20140127
  Serious: No
  Sender: FDA-Public Use
  Company Number: US-ASTRAZENECA-2013SE02360

PATIENT
  Sex: Female

DRUGS (2)
  1. SEROQUEL [Suspect]
     Route: 048
  2. GEODON [Suspect]
     Route: 065

REACTIONS (3)
  - Affect lability [Unknown]
  - Weight increased [Recovering/Resolving]
  - Drug dose omission [Unknown]
